FAERS Safety Report 7335182-5 (Version None)
Quarter: 2011Q1

REPORT INFORMATION
  Report Type: 
  Country: None (occurrence: None)
  Receive Date: 20110307
  Receipt Date: 20110228
  Transmission Date: 20110831
  Serious: Yes (Other)
  Sender: FDA-Public Use
  Company Number: PL-AMGEN-POLSP2011012069

PATIENT
  Age: 44 Year
  Sex: Female
  Weight: 130 kg

DRUGS (2)
  1. NEUPOGEN [Suspect]
     Indication: PERIPHERAL BLOOD STEM CELL APHERESIS
     Dosage: 5 A?G/KG, BID
     Route: 058
     Dates: start: 20081204, end: 20081209
  2. METOPROLOL [Concomitant]
     Dosage: 100 UNK, UNK

REACTIONS (3)
  - BONE PAIN [None]
  - PLATELET COUNT DECREASED [None]
  - GLOMERULONEPHRITIS ACUTE [None]
